FAERS Safety Report 20489621 (Version 1)
Quarter: 2022Q1

REPORT INFORMATION
  Report Type: Spontaneous
  Country: CN (occurrence: CN)
  Receive Date: 20220218
  Receipt Date: 20220218
  Transmission Date: 20220423
  Serious: Yes (Hospitalization, Other)
  Sender: FDA-Public Use
  Company Number: CN-PFIZER INC-202200257047

PATIENT
  Age: 4 Year
  Sex: Female
  Weight: 15 kg

DRUGS (5)
  1. CYTARABINE [Suspect]
     Active Substance: CYTARABINE
     Indication: Chemotherapy
     Dosage: ABOUT 50MG/M2/TIME
     Route: 041
     Dates: start: 20220117, end: 20220124
  2. CYCLOPHOSPHAMIDE [Suspect]
     Active Substance: CYCLOPHOSPHAMIDE
     Indication: Chemotherapy
     Dosage: (ABOUT 1000MGM2/D)
     Route: 041
     Dates: start: 20220117, end: 20220117
  3. VINDESINE SULFATE [Suspect]
     Active Substance: VINDESINE SULFATE
     Indication: Chemotherapy
     Dosage: 3.0MG/M2/D
     Route: 041
     Dates: start: 20220117, end: 20220117
  4. VINDESINE SULFATE [Suspect]
     Active Substance: VINDESINE SULFATE
     Dosage: 3.0MG/M2/D
     Route: 041
     Dates: start: 20220124, end: 20220124
  5. PEGASPARGASE [Concomitant]
     Active Substance: PEGASPARGASE
     Dosage: 1300U
     Dates: start: 20220117, end: 20220117

REACTIONS (3)
  - Myelosuppression [Recovering/Resolving]
  - Vomiting [Recovering/Resolving]
  - Seizure [Unknown]

NARRATIVE: CASE EVENT DATE: 20220130
